FAERS Safety Report 14551874 (Version 3)
Quarter: 2019Q1

REPORT INFORMATION
  Report Type: Spontaneous
  Country: US (occurrence: US)
  Receive Date: 20180220
  Receipt Date: 20190314
  Transmission Date: 20190417
  Serious: No
  Sender: FDA-Public Use
  Company Number: US-PFIZER INC-2018069006

PATIENT
  Age: 36 Year
  Sex: Male

DRUGS (2)
  1. METHOTREXATE SODIUM. [Suspect]
     Active Substance: METHOTREXATE SODIUM
     Dosage: UNK
  2. INFLIXIMAB [Suspect]
     Active Substance: INFLIXIMAB
     Dosage: UNK

REACTIONS (1)
  - Arthralgia [Unknown]
